FAERS Safety Report 10038611 (Version 1)
Quarter: 2014Q1

REPORT INFORMATION
  Report Type: Spontaneous
  Country: US (occurrence: None)
  Receive Date: 20140306
  Receipt Date: 20140306
  Transmission Date: 20141002
  Serious: Yes (Other)
  Sender: FDA-Public Use
  Company Number: 163-21880-12061162

PATIENT
  Age: 59 Year
  Sex: Female
  Weight: 51.71 kg

DRUGS (10)
  1. REVLIMID (LENALIDOMIDE) (15 MILLIGRAM, CAPSULES) [Suspect]
     Indication: PLASMA CELL MYELOMA
     Route: 048
     Dates: start: 200811, end: 2008
  2. DEXAMETHASONE [Concomitant]
  3. PROCHLORPERAZINE [Concomitant]
  4. METOPROLOL [Concomitant]
  5. OXYCODONE [Concomitant]
  6. DULCOLAX (BISACODYL) [Concomitant]
  7. MIRALAX (MACROGOL) [Concomitant]
  8. CALCIUM + VITAMIN D (LEKOVIT CA) [Concomitant]
  9. MULTIVITAMINS [Concomitant]
  10. VELCADE (BORTEZOMIB) [Concomitant]

REACTIONS (3)
  - Pulmonary embolism [None]
  - Nasopharyngitis [None]
  - White blood cell count decreased [None]
